FAERS Safety Report 7682272-3 (Version None)
Quarter: 2011Q3

REPORT INFORMATION
  Report Type: 
  Country: None (occurrence: None)
  Receive Date: 20110805
  Receipt Date: 20110801
  Transmission Date: 20111222
  Serious: Yes (Hospitalization)
  Sender: FDA-Public Use
  Company Number: WAES 1104USA01556

PATIENT
  Age: 66 Year
  Sex: Male

DRUGS (9)
  1. PREDNISOLONE [Suspect]
     Indication: PROSTATE CANCER
     Dosage: 10 MG/DAILY PO
     Route: 048
     Dates: start: 20110117
  2. DOCETAXEL [Suspect]
     Indication: PROSTATE CANCER
     Dosage: 75 MG/DAILY IV
     Route: 042
     Dates: start: 20110117
  3. LIPITOR [Concomitant]
  4. DECADRON [Suspect]
     Indication: PROSTATE CANCER
     Dosage: 8 MG/BID PO
     Route: 049
     Dates: start: 20110116, end: 20110118
  5. ISTIN [Concomitant]
  6. BLINDED THERAPY [Suspect]
     Indication: PROSTATE CANCER
     Dosage: 100 MG/DAILY PO
     Route: 048
     Dates: start: 20110117
  7. LIDOCAINE HYDROCHLORIDE [Concomitant]
  8. MIDAZOLAM HCL [Concomitant]
  9. ATACAND [Concomitant]

REACTIONS (8)
  - CONSTIPATION [None]
  - ABDOMINAL PAIN UPPER [None]
  - HYPERCALCAEMIA [None]
  - RENAL FAILURE ACUTE [None]
  - CHEST PAIN [None]
  - GASTROOESOPHAGEAL REFLUX DISEASE [None]
  - GASTRIC ULCER [None]
  - GASTRITIS [None]
